FAERS Safety Report 4714346-0 (Version None)
Quarter: 2005Q3

REPORT INFORMATION
  Report Type: 
  Country: None (occurrence: None)
  Receive Date: 20050714
  Receipt Date: 20050104
  Transmission Date: 20060218
  Serious: Yes (Hospitalization, Disabling)
  Sender: FDA-Public Use
  Company Number: US-ROCHE-391660

PATIENT
  Sex: Male

DRUGS (6)
  1. LARIAM [Suspect]
     Indication: MALARIA PROPHYLAXIS
     Route: 065
     Dates: start: 19950515, end: 19960615
  2. GABAPENTIN [Concomitant]
  3. EFFEXOR XR [Concomitant]
  4. LORAZEPAM [Concomitant]
  5. SEROQUEL [Concomitant]
  6. DIAZEPAM [Concomitant]

REACTIONS (41)
  - ADJUSTMENT DISORDER [None]
  - AMNESIA [None]
  - AMOEBIASIS [None]
  - ANHEDONIA [None]
  - APHASIA [None]
  - BLOOD PRESSURE INCREASED [None]
  - BRADYCARDIA [None]
  - COORDINATION ABNORMAL [None]
  - CRYING [None]
  - DISTURBANCE IN ATTENTION [None]
  - DYSARTHRIA [None]
  - EARLY MORNING AWAKENING [None]
  - ERECTILE DYSFUNCTION [None]
  - FATIGUE [None]
  - FEELING JITTERY [None]
  - FLAT AFFECT [None]
  - GENERALISED ANXIETY DISORDER [None]
  - HYPERSOMNIA [None]
  - HYPOTENSION [None]
  - INADEQUATE DIET [None]
  - INITIAL INSOMNIA [None]
  - JUDGEMENT IMPAIRED [None]
  - LIBIDO DECREASED [None]
  - MAJOR DEPRESSION [None]
  - MEMORY IMPAIRMENT [None]
  - MENTAL DISORDER [None]
  - MITRAL VALVE PROLAPSE [None]
  - MOOD SWINGS [None]
  - PALPITATIONS [None]
  - PANIC ATTACK [None]
  - PSYCHOMOTOR RETARDATION [None]
  - PSYCHOTIC DISORDER [None]
  - RESTLESSNESS [None]
  - SCROTAL VARICOSE VEINS [None]
  - SELF ESTEEM DECREASED [None]
  - SELF INJURIOUS BEHAVIOUR [None]
  - SOCIAL AVOIDANT BEHAVIOUR [None]
  - SOMATISATION DISORDER [None]
  - SUICIDAL IDEATION [None]
  - VARICOCELE [None]
  - VIRAL INFECTION [None]
